FAERS Safety Report 9520032 (Version 3)
Quarter: 2013Q4

REPORT INFORMATION
  Report Type: Report from Study
  Country: US (occurrence: US)
  Receive Date: 20130912
  Receipt Date: 20131002
  Transmission Date: 20140711
  Serious: Yes (Other)
  Sender: FDA-Public Use
  Company Number: US-ROCHE-1271716

PATIENT
  Age: 59 Year
  Sex: Male

DRUGS (15)
  1. LUCENTIS [Suspect]
     Indication: DIABETIC RETINAL OEDEMA
     Dosage: ^SIDE B^
     Route: 050
     Dates: start: 20100614
  2. LUCENTIS [Suspect]
     Indication: DIABETIC RETINOPATHY
     Dosage: BOTH EYES
     Route: 050
     Dates: start: 20110303
  3. LUCENTIS [Suspect]
     Route: 050
     Dates: start: 20130108
  4. LUCENTIS [Suspect]
     Route: 050
     Dates: start: 20130218
  5. LUCENTIS [Suspect]
     Dosage: LEFT EYE
     Route: 050
  6. COMBIGAN [Concomitant]
     Dosage: ^GTT^; ^SIDE B^
     Route: 065
  7. PILOCARPINE [Concomitant]
     Dosage: 2% ^SIDE R^ GTT
     Route: 065
  8. TRAVATAN [Concomitant]
     Dosage: GTT AS NEEDED ^SIDE B^
     Route: 065
  9. CRESTOR [Concomitant]
     Route: 048
  10. DIOVAN [Concomitant]
     Route: 048
  11. GLUCOVANCE [Concomitant]
     Route: 048
  12. GLUCOVANCE [Concomitant]
     Route: 048
  13. HUMULIN 70/30 [Concomitant]
     Route: 065
  14. OMEGA 3 [Concomitant]
     Route: 048
  15. UNIRETIC [Concomitant]
     Route: 048

REACTIONS (5)
  - Retinal haemorrhage [Unknown]
  - Retinal aneurysm [Unknown]
  - Maculopathy [Unknown]
  - Cystoid macular oedema [Unknown]
  - Vision blurred [Unknown]
